FAERS Safety Report 9351455 (Version 2)
Quarter: 2013Q2

REPORT INFORMATION
  Report Type: Other
  Country: DE (occurrence: DE)
  Receive Date: 20130617
  Receipt Date: 20130625
  Transmission Date: 20140414
  Serious: Yes (Other)
  Sender: FDA-Public Use
  Company Number: DE-NICOBRDEVP-2013-10253

PATIENT
  Age: 25 Year
  Sex: Female
  Weight: 70 kg

DRUGS (4)
  1. TOPIRAMATE (UNKNOWN) [Suspect]
     Indication: EPILEPSY
     Dosage: 50 MG, BID
     Route: 048
     Dates: start: 2007
  2. EUTHYROX [Concomitant]
     Indication: HYPOTHYROIDISM
     Dosage: 50 MCG, DAILY
     Route: 048
     Dates: start: 20130228, end: 20130509
  3. UTROGEST [Concomitant]
     Indication: PROPHYLAXIS OF ABORTION
     Dosage: 100 MG, DAILY
     Route: 048
     Dates: start: 201304, end: 201305
  4. FOLIC ACID [Concomitant]
     Indication: PROPHYLAXIS OF NEURAL TUBE DEFECT
     Dosage: 0.4 MG, DAILY
     Route: 048
     Dates: start: 20130228, end: 20130509

REACTIONS (2)
  - Abortion missed [Unknown]
  - Maternal exposure before pregnancy [Unknown]
